FAERS Safety Report 13484665 (Version 2)
Quarter: 2017Q3

REPORT INFORMATION
  Report Type: Spontaneous
  Country: JP (occurrence: JP)
  Receive Date: 20170426
  Receipt Date: 20170714
  Transmission Date: 20171127
  Serious: Yes (Death, Hospitalization, Other)
  Sender: FDA-Public Use
  Company Number: PHJP2017JP014019

PATIENT
  Age: 16 Year
  Sex: Male
  Weight: 80 kg

DRUGS (9)
  1. VORICONAZOLE. [Suspect]
     Active Substance: VORICONAZOLE
     Indication: PROPHYLAXIS AGAINST TRANSPLANT REJECTION
     Dosage: 100 MG, BID
     Route: 048
     Dates: start: 20170112, end: 20170123
  2. EXJADE [Concomitant]
     Active Substance: DEFERASIROX
     Indication: IRON OVERLOAD
     Dosage: UNK
     Route: 048
     Dates: end: 20170117
  3. VORICONAZOLE. [Suspect]
     Active Substance: VORICONAZOLE
     Indication: PROPHYLAXIS AGAINST TRANSPLANT REJECTION
  4. CELLCEPT [Suspect]
     Active Substance: MYCOPHENOLATE MOFETIL\MYCOPHENOLATE MOFETIL HYDROCHLORIDE
     Indication: PROPHYLAXIS AGAINST GRAFT VERSUS HOST DISEASE
     Dosage: UNK
     Route: 048
     Dates: start: 20170201, end: 20170313
  5. PREDONINE [Suspect]
     Active Substance: PREDNISOLONE
     Indication: PRODUCT USED FOR UNKNOWN INDICATION
     Dosage: UNK
     Route: 065
  6. SANDIMMUN INFUSION [Suspect]
     Active Substance: CYCLOSPORINE
     Indication: PROPHYLAXIS AGAINST GRAFT VERSUS HOST DISEASE
     Dosage: UNK
     Route: 041
     Dates: start: 20170110, end: 20170211
  7. VORICONAZOLE. [Suspect]
     Active Substance: VORICONAZOLE
     Indication: BONE MARROW TRANSPLANT
     Dosage: 150 MG, BID
     Route: 048
     Dates: start: 20170111, end: 20170112
  8. NICARDIPINE [Suspect]
     Active Substance: NICARDIPINE
     Indication: HYPERTENSION
     Dosage: UNK
     Route: 041
     Dates: start: 20170131, end: 20170314
  9. VORICONAZOLE. [Suspect]
     Active Substance: VORICONAZOLE
     Indication: BONE MARROW TRANSPLANT
     Dosage: 100 MG, BID
     Route: 041
     Dates: start: 20170124, end: 20170212

REACTIONS (13)
  - Renal impairment [Unknown]
  - Blood pressure decreased [Unknown]
  - Haemolysis [Unknown]
  - Aspartate aminotransferase increased [Fatal]
  - Alanine aminotransferase increased [Fatal]
  - Hepatic enzyme increased [Fatal]
  - Pyrexia [Unknown]
  - Hepatitis acute [Fatal]
  - Parkinsonism [Not Recovered/Not Resolved]
  - Low density lipoprotein increased [Unknown]
  - Diarrhoea [Not Recovered/Not Resolved]
  - Seizure [Unknown]
  - Thrombotic microangiopathy [Unknown]

NARRATIVE: CASE EVENT DATE: 20170208
